FAERS Safety Report 7369582-4 (Version None)
Quarter: 2011Q1

REPORT INFORMATION
  Report Type: 
  Country: None (occurrence: None)
  Receive Date: 20110323
  Receipt Date: 20110318
  Transmission Date: 20110831
  Serious: Yes (Other)
  Sender: FDA-Public Use
  Company Number: US-PFIZER INC-2011060541

PATIENT
  Sex: Male
  Weight: 83.9 kg

DRUGS (3)
  1. NEURONTIN [Suspect]
     Indication: TREMOR
     Dosage: 600 MG, 3X/DAY
     Route: 048
     Dates: start: 20110312
  2. BUPRENORPHINE HCL AND NALOXONE HCL [Concomitant]
     Dosage: UNK
     Route: 060
  3. CLONIDINE [Concomitant]
     Dosage: UNK

REACTIONS (18)
  - IMPULSIVE BEHAVIOUR [None]
  - HYPOAESTHESIA [None]
  - ABNORMAL BEHAVIOUR [None]
  - COORDINATION ABNORMAL [None]
  - FATIGUE [None]
  - OEDEMA PERIPHERAL [None]
  - CLUMSINESS [None]
  - SOMNOLENCE [None]
  - FALL [None]
  - SEDATION [None]
  - IRRITABILITY [None]
  - AGGRESSION [None]
  - FEELING ABNORMAL [None]
  - AGITATION [None]
  - BACK PAIN [None]
  - DYSARTHRIA [None]
  - AMNESIA [None]
  - GAIT DISTURBANCE [None]
